FAERS Safety Report 24372066 (Version 1)
Quarter: 2024Q3

REPORT INFORMATION
  Report Type: Spontaneous
  Country: US (occurrence: None)
  Receive Date: 20240927
  Receipt Date: 20240927
  Transmission Date: 20241016
  Serious: Yes (Disabling)
  Sender: Public
  Company Number: None

PATIENT
  Age: 64 Year
  Sex: Male
  Weight: 65.25 kg

DRUGS (2)
  1. PITAVASTATIN [Suspect]
     Active Substance: PITAVASTATIN
     Indication: Low density lipoprotein increased
     Dosage: OTHER QUANTITY : 90 TABLET(S);?FREQUENCY : AT BEDTIME;?
     Route: 048
     Dates: start: 20240705, end: 20240907
  2. Vitamin D. [Concomitant]

REACTIONS (5)
  - Myalgia [None]
  - Gastrointestinal inflammation [None]
  - Diarrhoea [None]
  - Hypertonic bladder [None]
  - Therapy cessation [None]

NARRATIVE: CASE EVENT DATE: 20240815
